FAERS Safety Report 5749428-8 (Version None)
Quarter: 2008Q2

REPORT INFORMATION
  Report Type: 
  Country: None (occurrence: None)
  Receive Date: 20080522
  Receipt Date: 20080522
  Transmission Date: 20081010
  Serious: Yes (Hospitalization)
  Sender: FDA-Public Use
  Company Number: None

PATIENT
  Age: 23 Year
  Sex: Female

DRUGS (1)
  1. BUPIVACAINE/DEXTROSE 0.75%/8.25% SMITHS MEDICAL ASD [Suspect]

REACTIONS (1)
  - DRUG INEFFECTIVE [None]
